FAERS Safety Report 8464895-7 (Version None)
Quarter: 2012Q2

REPORT INFORMATION
  Report Type: 
  Country: None (occurrence: None)
  Receive Date: 20120323
  Receipt Date: 20111017
  Transmission Date: 20120825
  Serious: Yes (Hospitalization)
  Sender: FDA-Public Use
  Company Number: 163-21880-11093646

PATIENT
  Age: 58 Year
  Sex: Male

DRUGS (14)
  1. METHOTREXATE [Concomitant]
  2. AMARYL [Concomitant]
  3. CENTRUM (CENTRUM) [Concomitant]
  4. PREDNISONE TAB [Concomitant]
  5. GABAPENTIN [Concomitant]
  6. MIRALAX [Concomitant]
  7. ASCORBIC ACID [Concomitant]
  8. ASPIRIN [Concomitant]
  9. FOLIC ACID [Concomitant]
  10. REVLIMID [Suspect]
     Indication: MULTIPLE MYELOMA
     Dosage: 1 CAPS, DAILY X 21 DAYS/28 DAYS, PO, 10 MG, DAILY X 21 DAYS/28 DAYS, PO
     Route: 048
     Dates: start: 20100609, end: 20110101
  11. REVLIMID [Suspect]
     Indication: MULTIPLE MYELOMA
     Dosage: 1 CAPS, DAILY X 21 DAYS/28 DAYS, PO, 10 MG, DAILY X 21 DAYS/28 DAYS, PO
     Route: 048
     Dates: start: 20110511, end: 20110902
  12. L-LYSINE (LYSINE) [Concomitant]
  13. LORTAB [Concomitant]
  14. BENADRYL [Concomitant]

REACTIONS (1)
  - HERPES ZOSTER [None]
